FAERS Safety Report 9059765 (Version 1)
Quarter: 2013Q1

REPORT INFORMATION
  Report Type: Spontaneous
  Country: IL (occurrence: IL)
  Receive Date: 20130211
  Receipt Date: 20130211
  Transmission Date: 20140127
  Serious: Yes (Hospitalization)
  Sender: FDA-Public Use
  Company Number: IL-009507513-1302ISR003661

PATIENT
  Age: 22 Year
  Sex: Female

DRUGS (3)
  1. VICTRELIS [Suspect]
     Dosage: UNK MG, UNK
     Route: 048
     Dates: start: 20121227
  2. REBETOL [Suspect]
     Dosage: UNK
     Dates: start: 20121227
  3. PEGASYS [Suspect]
     Dosage: UNK
     Dates: start: 20121227

REACTIONS (5)
  - Leukopenia [Unknown]
  - Bone marrow failure [Unknown]
  - Neutrophil count decreased [Unknown]
  - Haemoglobin decreased [Unknown]
  - Inappropriate schedule of drug administration [Unknown]
